FAERS Safety Report 25081002 (Version 1)
Quarter: 2025Q1

REPORT INFORMATION
  Report Type: Spontaneous
  Country: FR (occurrence: FR)
  Receive Date: 20250315
  Receipt Date: 20250315
  Transmission Date: 20250409
  Serious: Yes (Other)
  Sender: DR REDDYS
  Company Number: FR-GERMAN-FRA/2025/03/003778

PATIENT
  Age: 22 Year

DRUGS (2)
  1. CYCLOPHOSPHAMIDE [Suspect]
     Active Substance: CYCLOPHOSPHAMIDE
     Indication: Large granular lymphocytosis
  2. CYCLOSPORINE [Suspect]
     Active Substance: CYCLOSPORINE
     Indication: Large granular lymphocytosis

REACTIONS (3)
  - Immune thrombocytopenia [Unknown]
  - Autoimmune haemolytic anaemia [Unknown]
  - Treatment failure [Unknown]
